FAERS Safety Report 5236617-4 (Version None)
Quarter: 2007Q1

REPORT INFORMATION
  Report Type: 
  Country: None (occurrence: None)
  Receive Date: 20070208
  Receipt Date: 20070130
  Transmission Date: 20070707
  Serious: Yes (Other)
  Sender: FDA-Public Use
  Company Number: 230775K07USA

PATIENT
  Age: 37 Year
  Sex: Female
  Weight: 59.4212 kg

DRUGS (1)
  1. REBIF [Suspect]
     Indication: MULTIPLE SCLEROSIS
     Dosage: 44 MCG, 3 IN 1 WEEKS, SUBCUTANEOUS
     Route: 058
     Dates: start: 20051201, end: 20070129

REACTIONS (3)
  - HYPERTENSION [None]
  - INJECTION SITE REACTION [None]
  - RENAL FAILURE ACUTE [None]
